FAERS Safety Report 12834796 (Version 4)
Quarter: 2017Q1

REPORT INFORMATION
  Report Type: Spontaneous
  Country: US (occurrence: US)
  Receive Date: 20161010
  Receipt Date: 20170328
  Transmission Date: 20170428
  Serious: Yes (Hospitalization)
  Sender: FDA-Public Use
  Company Number: US-PFIZER INC-2016469328

PATIENT
  Age: 70 Year
  Sex: Female
  Weight: 58 kg

DRUGS (2)
  1. SUTENT [Suspect]
     Active Substance: SUNITINIB MALATE
     Indication: PANCREATIC CARCINOMA METASTATIC
     Dosage: 37.5 MG, CYCLIC (D1-D28 Q 28 DAYS)
     Route: 048
     Dates: start: 20150820
  2. SUTENT [Suspect]
     Active Substance: SUNITINIB MALATE
     Indication: PANCREATIC CARCINOMA
     Dosage: 37.5 MG, DAILY
     Route: 048
     Dates: start: 20150820

REACTIONS (9)
  - Blood potassium increased [Recovered/Resolved]
  - Urinary tract infection [Unknown]
  - Drug dose omission [Unknown]
  - Rash [Recovering/Resolving]
  - Blood sodium decreased [Recovered/Resolved]
  - Blood glucose increased [Recovered/Resolved]
  - Rash generalised [Unknown]
  - Vomiting [Unknown]
  - Fatigue [Unknown]

NARRATIVE: CASE EVENT DATE: 20161215
